FAERS Safety Report 5284479-1 (Version None)
Quarter: 2007Q1

REPORT INFORMATION
  Report Type: 
  Country: None (occurrence: None)
  Receive Date: 20070328
  Receipt Date: 20070316
  Transmission Date: 20070707
  Serious: Yes (Death, Other)
  Sender: FDA-Public Use
  Company Number: 2007-00768

PATIENT
  Age: 75 Year
  Sex: Male

DRUGS (2)
  1. VELCADE [Suspect]
     Indication: MULTIPLE MYELOMA
     Dosage: 1.30 MG/M2, UNK, INTRAVENOUS
     Route: 042
     Dates: start: 20070306, end: 20070308
  2. DEXAMETHASONE [Concomitant]

REACTIONS (2)
  - ILEUS [None]
  - INTESTINAL ISCHAEMIA [None]
